FAERS Safety Report 5053839-6 (Version None)
Quarter: 2006Q3

REPORT INFORMATION
  Report Type: 
  Country: None (occurrence: None)
  Receive Date: 20060718
  Receipt Date: 20060711
  Transmission Date: 20061208
  Serious: Yes (Hospitalization, Other)
  Sender: FDA-Public Use
  Company Number: JP-GLAXOSMITHKLINE-B0430950A

PATIENT
  Age: 68 Year
  Sex: Male

DRUGS (11)
  1. CARVEDILOL [Suspect]
     Indication: CARDIAC FAILURE CHRONIC
     Dosage: 1.25MG PER DAY
     Route: 048
     Dates: start: 20041206, end: 20050129
  2. ASPIRIN [Concomitant]
     Dates: start: 20041122, end: 20050129
  3. PANALDINE [Concomitant]
     Dates: start: 20041122, end: 20050129
  4. SIGMART [Concomitant]
     Dates: start: 20041122, end: 20050129
  5. MEVALOTIN [Concomitant]
     Dates: start: 20041122, end: 20050129
  6. TAGAMET [Concomitant]
  7. ACARDI [Concomitant]
     Dates: start: 20041122, end: 20050129
  8. ALDACTONE [Concomitant]
     Dates: start: 20041122, end: 20050129
  9. LASIX [Concomitant]
     Dates: start: 20041122, end: 20050129
  10. BASEN [Concomitant]
     Dates: start: 20041122, end: 20050129
  11. AMARYL [Concomitant]
     Dates: start: 20041122, end: 20050129

REACTIONS (1)
  - CARDIAC FAILURE [None]
